FAERS Safety Report 6253933-8 (Version None)
Quarter: 2009Q3

REPORT INFORMATION
  Report Type: 
  Country: None (occurrence: None)
  Receive Date: 20090701
  Receipt Date: 20090701
  Transmission Date: 20100115
  Serious: No
  Sender: FDA-Public Use
  Company Number: None

PATIENT
  Age: 23 Month
  Sex: Female

DRUGS (2)
  1. GAMMAGARD [Suspect]
     Indication: KAWASAKI'S DISEASE
     Dosage: 20 GM ONCE IV
     Route: 042
     Dates: start: 20090504, end: 20090504
  2. GAMMAGARD [Suspect]

REACTIONS (1)
  - INFUSION RELATED REACTION [None]
